FAERS Safety Report 6306391-9 (Version None)
Quarter: 2009Q3

REPORT INFORMATION
  Report Type: 
  Country: None (occurrence: None)
  Receive Date: 20090812
  Receipt Date: 20090807
  Transmission Date: 20100115
  Serious: Yes (Hospitalization)
  Sender: FDA-Public Use
  Company Number: US-ELI_LILLY_AND_COMPANY-US200908001701

PATIENT
  Sex: Female

DRUGS (14)
  1. HUMULIN R [Suspect]
  2. LANTUS [Concomitant]
  3. NOVOLOG [Concomitant]
  4. COLACE [Concomitant]
  5. LOVENOX [Concomitant]
  6. CLONIDINE [Concomitant]
  7. SINGULAIR [Concomitant]
  8. HALDOL [Concomitant]
  9. RISPERDAL [Concomitant]
  10. ASPIRIN [Concomitant]
  11. LOVASTATIN [Concomitant]
  12. PROPRANOLOL [Concomitant]
  13. LEVAQUIN [Concomitant]
  14. SYMBICORT [Concomitant]

REACTIONS (1)
  - DIVERTICULUM [None]
